FAERS Safety Report 17005759 (Version 2)
Quarter: 2019Q4

REPORT INFORMATION
  Report Type: Spontaneous
  Country: US (occurrence: US)
  Receive Date: 20191107
  Receipt Date: 20191113
  Transmission Date: 20200122
  Serious: Yes (Hospitalization, Other)
  Sender: FDA-Public Use
  Company Number: US-SA-2019SA300614

PATIENT
  Age: 70 Year
  Sex: Female

DRUGS (2)
  1. LANTUS SOLOSTAR [Suspect]
     Active Substance: INSULIN GLARGINE
     Dosage: 10 U, QD
     Route: 065
  2. LANTUS SOLOSTAR [Suspect]
     Active Substance: INSULIN GLARGINE
     Indication: TYPE 2 DIABETES MELLITUS
     Dosage: 18 U, QD
     Route: 065

REACTIONS (13)
  - Fall [Unknown]
  - Weight decreased [Unknown]
  - Tremor [Unknown]
  - Thyroid disorder [Unknown]
  - Nervous system disorder [Unknown]
  - Product dose omission [Unknown]
  - Cervical vertebral fracture [Unknown]
  - Hypertonic bladder [Unknown]
  - Dry eye [Unknown]
  - Eye infection [Unknown]
  - Hospitalisation [Unknown]
  - Nerve compression [Unknown]
  - Pancreatic disorder [Unknown]

NARRATIVE: CASE EVENT DATE: 20190911
